FAERS Safety Report 19079889 (Version 1)
Quarter: 2021Q2

REPORT INFORMATION
  Report Type: Spontaneous
  Country: US (occurrence: US)
  Receive Date: 20210401
  Receipt Date: 20210401
  Transmission Date: 20210717
  Serious: No
  Sender: FDA-Public Use
  Company Number: US-SA-2021SA105454

PATIENT
  Sex: Female

DRUGS (2)
  1. MODERNA COVID?19 VACCINE [Suspect]
     Active Substance: CX-024414
  2. DUPIXENT [Suspect]
     Active Substance: DUPILUMAB
     Dosage: UNK
     Dates: start: 201912

REACTIONS (1)
  - Urticaria [Unknown]
